FAERS Safety Report 7234065-9 (Version None)
Quarter: 2011Q1

REPORT INFORMATION
  Report Type: 
  Country: None (occurrence: None)
  Receive Date: 20110119
  Receipt Date: 20100513
  Transmission Date: 20110831
  Serious: Yes (Other)
  Sender: FDA-Public Use
  Company Number: US-PFIZER INC-2010049725

PATIENT
  Sex: Female

DRUGS (1)
  1. ACCURETIC [Suspect]

REACTIONS (2)
  - HYPERTENSION [None]
  - VOMITING [None]
